FAERS Safety Report 5721016-9 (Version None)
Quarter: 2008Q2

REPORT INFORMATION
  Report Type: 
  Country: None (occurrence: None)
  Receive Date: 20080424
  Receipt Date: 20080415
  Transmission Date: 20081010
  Serious: Yes (Other)
  Sender: FDA-Public Use
  Company Number: 2008BI007688

PATIENT
  Sex: Male

DRUGS (2)
  1. TYSABRI [Suspect]
     Indication: MULTIPLE SCLEROSIS
     Dosage: IV
     Route: 042
     Dates: start: 20070115, end: 20080401
  2. SOLU-MEDROL [Concomitant]

REACTIONS (2)
  - BASAL CELL CARCINOMA [None]
  - CONDITION AGGRAVATED [None]
